FAERS Safety Report 9394903 (Version 2)
Quarter: 2013Q3

REPORT INFORMATION
  Report Type: Spontaneous
  Country: FR (occurrence: FR)
  Receive Date: 20130711
  Receipt Date: 20130807
  Transmission Date: 20140515
  Serious: Yes (Other)
  Sender: FDA-Public Use
  Company Number: FR-PFIZER INC-2013201118

PATIENT
  Sex: Female

DRUGS (2)
  1. DOSTINEX [Suspect]
     Dosage: UNK
  2. NIAPRAZINE [Interacting]
     Dosage: UNK

REACTIONS (4)
  - Drug interaction [Unknown]
  - Victim of sexual abuse [Unknown]
  - Somnolence [Unknown]
  - Amnesia [Unknown]
